FAERS Safety Report 24742686 (Version 2)
Quarter: 2024Q4

REPORT INFORMATION
  Report Type: Report from Study
  Country: TR (occurrence: TR)
  Receive Date: 20241217
  Receipt Date: 20241218
  Transmission Date: 20250115
  Serious: Yes (Death, Hospitalization, Other)
  Sender: PFIZER
  Company Number: TR-PFIZER INC-PV202300093509

PATIENT
  Age: 56 Year
  Sex: Female

DRUGS (3)
  1. ELRANATAMAB [Suspect]
     Active Substance: ELRANATAMAB
     Indication: Plasma cell myeloma refractory
     Dosage: 76 MG, WEEKLY
     Route: 058
     Dates: start: 20230131
  2. ELRANATAMAB [Suspect]
     Active Substance: ELRANATAMAB
     Dosage: 76 MG, EVERY 2 WEEKS
     Route: 058
  3. ELRANATAMAB [Suspect]
     Active Substance: ELRANATAMAB
     Dosage: 76 MG, EVERY TWO WEEKS
     Route: 058
     Dates: end: 20240819

REACTIONS (12)
  - Pulmonary sepsis [Fatal]
  - Weight decreased [Recovered/Resolved]
  - Pneumonia cytomegaloviral [Unknown]
  - Pneumonia [Recovered/Resolved]
  - Confusional state [Not Recovered/Not Resolved]
  - Cytomegalovirus chorioretinitis [Not Recovered/Not Resolved]
  - COVID-19 [Recovered/Resolved]
  - Hallucination [Not Recovered/Not Resolved]
  - Diarrhoea [Recovered/Resolved]
  - Cervical dysplasia [Not Recovered/Not Resolved]
  - Vulval disorder [Not Recovered/Not Resolved]
  - Panic attack [Not Recovered/Not Resolved]

NARRATIVE: CASE EVENT DATE: 20241101
